FAERS Safety Report 5659368-0 (Version None)
Quarter: 2008Q1

REPORT INFORMATION
  Report Type: 
  Country: None (occurrence: None)
  Receive Date: 20080311
  Receipt Date: 20080227
  Transmission Date: 20080703
  Serious: Yes (Hospitalization)
  Sender: FDA-Public Use
  Company Number: GB-RANBAXY-2008RR-13368

PATIENT

DRUGS (4)
  1. DISPERSIBLE ASPIRIN 75MG TABLETS BP [Suspect]
     Indication: HYPERTENSION
     Dosage: 75 MG, UNK
  2. ALLOPURINOL [Suspect]
     Dosage: 100 MG, UNK
  3. ATENOLOL [Suspect]
     Indication: HYPERTENSION
     Dosage: 100 MG, UNK
  4. IRBESARTAN [Suspect]
     Indication: HYPERTENSION
     Dosage: 75 MG, UNK

REACTIONS (2)
  - DIARRHOEA [None]
  - RENAL FAILURE ACUTE [None]
